FAERS Safety Report 16940446 (Version 1)
Quarter: 2019Q4

REPORT INFORMATION
  Report Type: Spontaneous
  Country: IT (occurrence: IT)
  Receive Date: 20191021
  Receipt Date: 20191021
  Transmission Date: 20200122
  Serious: Yes (Other)
  Sender: FDA-Public Use
  Company Number: IT-AMICUS THERAPEUTICS, INC.-AMI_591

PATIENT
  Age: 46 Year
  Sex: Female
  Weight: 83 kg

DRUGS (3)
  1. GALAFOLD [Suspect]
     Active Substance: MIGALASTAT HYDROCHLORIDE
     Indication: FABRY^S DISEASE
     Dosage: 123 MILLIGRAM, BID
     Route: 048
     Dates: start: 20181101, end: 20191003
  2. CARDURA [Concomitant]
     Active Substance: DOXAZOSIN MESYLATE
     Indication: HYPERTENSION
     Route: 048
  3. ALDOMET [Concomitant]
     Active Substance: METHYLDOPA
     Indication: CEREBRAL SMALL VESSEL ISCHAEMIC DISEASE
     Route: 048

REACTIONS (1)
  - Breast cancer [Recovering/Resolving]

NARRATIVE: CASE EVENT DATE: 20190910
